FAERS Safety Report 20878801 (Version 1)
Quarter: 2022Q2

REPORT INFORMATION
  Report Type: Spontaneous
  Country: US (occurrence: None)
  Receive Date: 20220526
  Receipt Date: 20220526
  Transmission Date: 20220720
  Serious: Yes (Other)
  Sender: FDA-Public Use
  Company Number: None

PATIENT
  Sex: Female

DRUGS (1)
  1. ESTRACE [Suspect]
     Active Substance: ESTRADIOL

REACTIONS (2)
  - Drug ineffective [None]
  - Treatment failure [None]
